FAERS Safety Report 25983110 (Version 1)
Quarter: 2025Q4

REPORT INFORMATION
  Report Type: Spontaneous
  Country: EU (occurrence: EU)
  Receive Date: 20251031
  Receipt Date: 20251031
  Transmission Date: 20260118
  Serious: Yes (Other)
  Sender: TEVA
  Company Number: None

PATIENT
  Age: 49 Year
  Sex: Female
  Weight: 69.9 kg

DRUGS (1)
  1. PAROXETINE [Suspect]
     Active Substance: PAROXETINE
     Indication: Depression
     Dosage: 1DD, PAROXETINE TABLET 10MG / BRAND NAME NOT SPECIFIED
     Route: 048
     Dates: start: 20100101

REACTIONS (1)
  - Leukopenia [Unknown]
